FAERS Safety Report 10141598 (Version 1)
Quarter: 2014Q2

REPORT INFORMATION
  Report Type: Spontaneous
  Country: DE (occurrence: DE)
  Receive Date: 20140429
  Receipt Date: 20140429
  Transmission Date: 20141212
  Serious: Yes (Hospitalization)
  Sender: FDA-Public Use
  Company Number: DE-GLAXOSMITHKLINE-D0083759A

PATIENT
  Age: 63 Year
  Sex: Male

DRUGS (6)
  1. REQUIP [Suspect]
     Indication: PARKINSON^S DISEASE
     Dosage: 4MG PER DAY
     Route: 048
     Dates: start: 201404
  2. STALEVO [Suspect]
     Indication: PARKINSON^S DISEASE
     Dosage: 125MG FOUR TIMES PER DAY
     Route: 065
     Dates: start: 201404
  3. SEROQUEL [Suspect]
     Indication: PARKINSON^S DISEASE
     Dosage: 150MG PER DAY
     Route: 065
     Dates: start: 201404
  4. APOMORPHINE HYDROCHLORIDE [Suspect]
     Indication: PARKINSON^S DISEASE
     Dosage: 5ML PER DAY
     Route: 065
     Dates: start: 201404
  5. ANTIHYPERTENSIVE [Suspect]
     Route: 065
  6. MINERALS [Suspect]
     Route: 065

REACTIONS (8)
  - Ileus [Unknown]
  - Gastrooesophageal reflux disease [Unknown]
  - Psychotic disorder [Unknown]
  - Pyrexia [Recovered/Resolved]
  - Dyspnoea [Unknown]
  - Tremor [Unknown]
  - Blood pressure increased [Unknown]
  - Wrong technique in drug usage process [Unknown]
